FAERS Safety Report 17376303 (Version 1)
Quarter: 2020Q1

REPORT INFORMATION
  Report Type: Spontaneous
  Country: DE (occurrence: DE)
  Receive Date: 20200206
  Receipt Date: 20200206
  Transmission Date: 20200409
  Serious: Yes (Other)
  Sender: FDA-Public Use
  Company Number: DE-GLAXOSMITHKLINE-DE2019201343

PATIENT
  Sex: Female
  Weight: 65 kg

DRUGS (2)
  1. VOLTAREN EMULGEL [Suspect]
     Active Substance: DICLOFENAC DIETHYLAMINE
     Indication: ARTHRALGIA
  2. VOLTAREN EMULGEL [Suspect]
     Active Substance: DICLOFENAC DIETHYLAMINE
     Indication: ARTHRITIS
     Dosage: 100 G, UNK
     Dates: start: 20190730, end: 20190820

REACTIONS (8)
  - Nasopharyngitis [Recovered/Resolved]
  - Pruritus [Recovered/Resolved]
  - Lacrimation increased [Recovered/Resolved]
  - Rash [Recovered/Resolved]
  - Haematoma [Recovered/Resolved]
  - Rhinorrhoea [Recovered/Resolved]
  - Haemorrhage subcutaneous [Recovered/Resolved]
  - Nasal disorder [Recovered/Resolved]
